FAERS Safety Report 13764802 (Version 2)
Quarter: 2017Q3

REPORT INFORMATION
  Report Type: Spontaneous
  Country: US (occurrence: US)
  Receive Date: 20170718
  Receipt Date: 20170807
  Transmission Date: 20171127
  Serious: Yes (Life-Threatening, Disabling, Other)
  Sender: FDA-Public Use
  Company Number: US-009507513-1707USA005382

PATIENT
  Age: 31 Year
  Sex: Male

DRUGS (6)
  1. KEPPRA [Interacting]
     Active Substance: LEVETIRACETAM
     Dosage: DOSE WAS INCREASED TO 4 GRAMS
  2. STROMECTOL [Interacting]
     Active Substance: IVERMECTIN
     Dosage: 5 DF, ONCE
     Route: 048
     Dates: start: 20170620
  3. DEPAKOTE [Concomitant]
     Active Substance: DIVALPROEX SODIUM
     Dosage: 500 MG, FOUR TIMES A DAY
  4. KEPPRA [Interacting]
     Active Substance: LEVETIRACETAM
     Dosage: 1000 MG THREE TIMES A DAY
  5. STROMECTOL [Suspect]
     Active Substance: IVERMECTIN
     Indication: ACARODERMATITIS
     Dosage: 5 DF, ONCE
     Route: 048
     Dates: start: 20170613
  6. TRILEPTAL [Concomitant]
     Active Substance: OXCARBAZEPINE
     Dosage: 600 MG, FOUR TIMES A DAY

REACTIONS (2)
  - Seizure [Not Recovered/Not Resolved]
  - Anticonvulsant drug level decreased [Not Recovered/Not Resolved]

NARRATIVE: CASE EVENT DATE: 20170616
